FAERS Safety Report 8013043-6 (Version None)
Quarter: 2011Q4

REPORT INFORMATION
  Report Type: 
  Country: None (occurrence: None)
  Receive Date: 20111229
  Receipt Date: 20111228
  Transmission Date: 20120403
  Serious: No
  Sender: FDA-Public Use
  Company Number: US-BAYER-2011-123940

PATIENT
  Age: 26 Year
  Sex: Female

DRUGS (1)
  1. FINACEA [Suspect]
     Indication: ROSACEA
     Dosage: UNK UNK, BID
     Route: 062
     Dates: start: 20111201

REACTIONS (3)
  - RASH MACULO-PAPULAR [None]
  - PAIN [None]
  - BURNING SENSATION [None]
